FAERS Safety Report 5371310-9 (Version None)
Quarter: 2007Q2

REPORT INFORMATION
  Report Type: 
  Country: None (occurrence: None)
  Receive Date: 20070615
  Receipt Date: 20060928
  Transmission Date: 20071010
  Serious: Yes (Other)
  Sender: FDA-Public Use
  Company Number: 200615525US

PATIENT
  Age: 63 Year
  Sex: Female

DRUGS (3)
  1. LANTUS [Suspect]
     Indication: DIABETES MELLITUS INSULIN-DEPENDENT
     Dosage: 15 IU QD; INJ
     Dates: start: 20050101
  2. OPTICLIK [Suspect]
     Indication: DIABETES MELLITUS INSULIN-DEPENDENT
     Dates: start: 20050101
  3. INSULIN (HUMALOG)            /)000030501 [Concomitant]

REACTIONS (4)
  - BLOOD GLUCOSE INCREASED [None]
  - GLAUCOMA [None]
  - HYPOGLYCAEMIC COMA [None]
  - LOSS OF CONSCIOUSNESS [None]
